FAERS Safety Report 9000060 (Version 1)
Quarter: 2013Q1

REPORT INFORMATION
  Report Type: Report from Study
  Country: JP (occurrence: JP)
  Receive Date: 20130102
  Receipt Date: 20130102
  Transmission Date: 20140127
  Serious: Yes (Hospitalization)
  Sender: FDA-Public Use
  Company Number: JP-SANOFI-AVENTIS-2012SA095393

PATIENT
  Age: 46 Year
  Sex: Male
  Weight: 135.1 kg

DRUGS (13)
  1. LANTUS SOLOSTAR [Suspect]
     Indication: TYPE 2 DIABETES MELLITUS
     Dosage: BEFORE BREAKFAST DOSE:6 UNIT(S)
     Route: 058
     Dates: start: 20120604, end: 20120610
  2. LANTUS SOLOSTAR [Suspect]
     Indication: TYPE 2 DIABETES MELLITUS
     Dosage: BEFORE BREAKFAST DOSE:8 UNIT(S)
     Route: 058
     Dates: start: 20120611, end: 20120626
  3. LANTUS SOLOSTAR [Suspect]
     Indication: TYPE 2 DIABETES MELLITUS
     Dosage: BEFORE BREAKFAST DOSE:12 UNIT(S)
     Route: 058
     Dates: start: 20120627, end: 20120701
  4. LANTUS SOLOSTAR [Suspect]
     Indication: TYPE 2 DIABETES MELLITUS
     Dosage: BEFORE BREAKFAST DOSE:14 UNIT(S)
     Route: 058
     Dates: start: 20120702, end: 20120910
  5. LANTUS SOLOSTAR [Suspect]
     Indication: TYPE 2 DIABETES MELLITUS
     Dosage: BEFORE BREAKFAST DOSE:16 UNIT(S)
     Route: 058
     Dates: start: 20120911, end: 20121016
  6. LANTUS SOLOSTAR [Suspect]
     Indication: TYPE 2 DIABETES MELLITUS
     Dosage: BEFORE BREAKFAST DOSE:18 UNIT(S)
     Route: 058
     Dates: start: 20121017
  7. SOLOSTAR [Suspect]
     Indication: DEVICE THERAPY
     Dates: start: 20120604
  8. AMARYL [Concomitant]
     Indication: TYPE 2 DIABETES MELLITUS
     Route: 048
     Dates: end: 20120603
  9. AMARYL [Concomitant]
     Indication: TYPE 2 DIABETES MELLITUS
     Route: 048
     Dates: start: 20120604
  10. JANUVIA [Concomitant]
     Indication: TYPE 2 DIABETES MELLITUS
     Route: 048
  11. METFORMIN [Concomitant]
     Indication: TYPE 2 DIABETES MELLITUS
     Dosage: STRENGTH: 250 MG
     Route: 048
  12. AMLODIPINE BESILATE [Concomitant]
     Route: 048
  13. ROSUVASTATIN CALCIUM [Concomitant]
     Route: 048

REACTIONS (1)
  - Sudden hearing loss [Recovered/Resolved]
